FAERS Safety Report 9908873 (Version 3)
Quarter: 2014Q2

REPORT INFORMATION
  Report Type: Spontaneous
  Country: US (occurrence: None)
  Receive Date: 20140212
  Receipt Date: 20140619
  Transmission Date: 20141212
  Serious: Yes (Hospitalization, Other)
  Sender: FDA-Public Use
  Company Number: 2014-US-001138

PATIENT
  Age: 52 Year
  Sex: Female

DRUGS (2)
  1. XYREM (SODIUM OXYBATE) ORAL SOLUTION, 500MG/ML [Suspect]
     Indication: NARCOLEPSY
     Route: 048
     Dates: start: 201212, end: 2013
  2. XYREM (SODIUM OXYBATE) ORAL SOLUTION, 500MG/ML [Suspect]
     Indication: CATAPLEXY
     Route: 048
     Dates: start: 201212, end: 2013

REACTIONS (2)
  - Intestinal obstruction [None]
  - Postoperative adhesion [None]
